FAERS Safety Report 15463536 (Version 1)
Quarter: 2018Q4

REPORT INFORMATION
  Report Type: Spontaneous
  Country: US (occurrence: US)
  Receive Date: 20181001
  Receipt Date: 20181001
  Transmission Date: 20190204
  Serious: Yes (Hospitalization)
  Sender: FDA-Public Use
  Company Number: None

PATIENT
  Age: 62 Year
  Sex: Male
  Weight: 101 kg

DRUGS (1)
  1. HYDROCHLOROTHIAZIDE/LISINOPRIL [Suspect]
     Active Substance: HYDROCHLOROTHIAZIDE\LISINOPRIL
     Indication: HYPERTENSION
     Dosage: ?          OTHER DOSE:1 TAB;?
     Route: 048
     Dates: start: 20140124, end: 20180702

REACTIONS (6)
  - Angioedema [None]
  - Pyrexia [None]
  - Dyspnoea [None]
  - Nasopharyngitis [None]
  - Ear pain [None]
  - Tongue oedema [None]

NARRATIVE: CASE EVENT DATE: 20180702
